FAERS Safety Report 12870723 (Version 4)
Quarter: 2017Q1

REPORT INFORMATION
  Report Type: Spontaneous
  Country: JP (occurrence: JP)
  Receive Date: 20161021
  Receipt Date: 20170125
  Transmission Date: 20170428
  Serious: Yes (Hospitalization, Other)
  Sender: FDA-Public Use
  Company Number: JP-009507513-1610JPN011496

PATIENT
  Age: 49 Year
  Sex: Female

DRUGS (3)
  1. GLACTIV [Suspect]
     Active Substance: SITAGLIPTIN
     Indication: TYPE 2 DIABETES MELLITUS
     Dosage: 50 MG, QD
     Route: 048
  2. METFORMIN [Suspect]
     Active Substance: METFORMIN HYDROCHLORIDE
     Indication: TYPE 2 DIABETES MELLITUS
     Dosage: 1000 MG, QD
     Route: 048
  3. GLIMEPIRIDE. [Concomitant]
     Active Substance: GLIMEPIRIDE
     Indication: TYPE 2 DIABETES MELLITUS
     Dosage: 2 MG, QD
     Route: 048

REACTIONS (6)
  - Cardiac failure [Unknown]
  - Hypophagia [Unknown]
  - Disseminated intravascular coagulation [Unknown]
  - Hypoglycaemia [Unknown]
  - Renal impairment [Unknown]
  - Lactic acidosis [Unknown]
